FAERS Safety Report 24150536 (Version 13)
Quarter: 2025Q4

REPORT INFORMATION
  Report Type: Spontaneous
  Country: CA (occurrence: CA)
  Receive Date: 20240730
  Receipt Date: 20251227
  Transmission Date: 20260118
  Serious: Yes (Life-Threatening, Other)
  Sender: CELLTRION
  Company Number: CA-CELLTRION INC.-2022CA022605

PATIENT

DRUGS (27)
  1. TRUXIMA [Suspect]
     Active Substance: RITUXIMAB-ABBS
     Indication: Rheumatoid arthritis
     Dosage: 1000 MG, DAY 1 AND 15
     Route: 042
     Dates: start: 20220927
  2. TRUXIMA [Suspect]
     Active Substance: RITUXIMAB-ABBS
     Dosage: 1000 MG, INFUSION#1 (FREQUENCY: DAY 1 AND 15)
     Route: 042
     Dates: start: 20220927
  3. TRUXIMA [Suspect]
     Active Substance: RITUXIMAB-ABBS
     Dosage: 1000 MG, INFUSION # 4
     Route: 042
     Dates: start: 20220927
  4. TRUXIMA [Suspect]
     Active Substance: RITUXIMAB-ABBS
     Dosage: 1000 MG, INF#5
     Route: 042
     Dates: start: 20220927
  5. TRUXIMA [Suspect]
     Active Substance: RITUXIMAB-ABBS
     Dosage: UNK
     Route: 042
  6. TRUXIMA [Suspect]
     Active Substance: RITUXIMAB-ABBS
     Dosage: 1000 MG, INF#6
     Route: 042
     Dates: start: 20220927
  7. TRUXIMA [Suspect]
     Active Substance: RITUXIMAB-ABBS
     Dosage: UNK
     Route: 042
  8. TRUXIMA [Suspect]
     Active Substance: RITUXIMAB-ABBS
     Dosage: 500 MG, INF#7
     Route: 042
     Dates: start: 20220927
  9. TRUXIMA [Suspect]
     Active Substance: RITUXIMAB-ABBS
     Dosage: 500 MG, INF#8
     Route: 042
     Dates: start: 20220927
  10. TRUXIMA [Suspect]
     Active Substance: RITUXIMAB-ABBS
     Dosage: 500 MG, DAY 1 AND 15
     Route: 042
     Dates: start: 20220927
  11. TRUXIMA [Suspect]
     Active Substance: RITUXIMAB-ABBS
     Dosage: 500MG DAY 1, 15
     Route: 042
     Dates: start: 20250522
  12. TRUXIMA [Suspect]
     Active Substance: RITUXIMAB-ABBS
     Dosage: 500MG DAY 1, 15
     Route: 042
     Dates: start: 20251204
  13. ACETAMINOPHEN [Concomitant]
     Active Substance: ACETAMINOPHEN
     Indication: Premedication
     Dosage: 650 MG
     Route: 048
  14. AJOVY [Concomitant]
     Active Substance: FREMANEZUMAB-VFRM
  15. AMLODIPINE [Concomitant]
     Active Substance: AMLODIPINE BESYLATE
  16. BENADRYL [Concomitant]
     Active Substance: DIPHENHYDRAMINE HYDROCHLORIDE
     Indication: Premedication
     Dosage: 50 MG
     Route: 048
  17. BENADRYL [Concomitant]
     Active Substance: DIPHENHYDRAMINE HYDROCHLORIDE
     Dosage: 50 MG
     Route: 042
  18. CRESTOR [Concomitant]
     Active Substance: ROSUVASTATIN CALCIUM
  19. CYMBALTA [Concomitant]
     Active Substance: DULOXETINE HYDROCHLORIDE
  20. MELOXICAM [Concomitant]
     Active Substance: MELOXICAM
  21. METHYLPREDNISOLONE [Concomitant]
     Active Substance: METHYLPREDNISOLONE
     Indication: Premedication
     Dosage: 200 MG
  22. METHYLPREDNISOLONE [Concomitant]
     Active Substance: METHYLPREDNISOLONE
     Dosage: 100 MG
     Route: 042
  23. SOLU-MEDROL [Concomitant]
     Active Substance: METHYLPREDNISOLONE SODIUM SUCCINATE
     Indication: Premedication
     Dosage: 200 MG
     Route: 042
  24. SULFASALAZINE [Concomitant]
     Active Substance: SULFASALAZINE
  25. TELMISARTAN [Concomitant]
     Active Substance: TELMISARTAN
  26. TYLENOL [Concomitant]
     Active Substance: ACETAMINOPHEN
     Indication: Premedication
     Dosage: 650 MG
     Route: 048
  27. ZOPICLONE [Concomitant]
     Active Substance: ZOPICLONE

REACTIONS (36)
  - Dysphagia [Recovered/Resolved]
  - Ear discomfort [Recovered/Resolved]
  - Pain [Unknown]
  - Phlebitis [Recovered/Resolved]
  - Cough [Recovered/Resolved]
  - Throat clearing [Recovered/Resolved]
  - Throat irritation [Recovered/Resolved]
  - Pruritus [Recovered/Resolved]
  - Headache [Recovered/Resolved]
  - Nausea [Recovered/Resolved]
  - Urticaria [Recovered/Resolved]
  - Sensation of foreign body [Recovered/Resolved]
  - Malaise [Unknown]
  - Somnolence [Unknown]
  - Poor venous access [Unknown]
  - Skin burning sensation [Recovered/Resolved]
  - Throat tightness [Recovered/Resolved]
  - Throat clearing [Recovered/Resolved]
  - Pruritus genital [Recovered/Resolved]
  - Pruritus genital [Recovered/Resolved]
  - Cough [Recovered/Resolved]
  - Phlebitis [Unknown]
  - Pruritus [Recovered/Resolved]
  - Pruritus [Recovered/Resolved]
  - Pruritus [Recovered/Resolved]
  - Pruritus [Recovered/Resolved]
  - Pruritus [Recovered/Resolved]
  - Throat irritation [Recovered/Resolved]
  - Throat irritation [Recovered/Resolved]
  - Throat irritation [Recovered/Resolved]
  - Throat irritation [Recovered/Resolved]
  - Product supply issue [Unknown]
  - Product administration error [Unknown]
  - Prescribed underdose [Unknown]
  - Product dose omission issue [Unknown]
  - Intentional dose omission [Unknown]

NARRATIVE: CASE EVENT DATE: 20220927
